FAERS Safety Report 19090329 (Version 2)
Quarter: 2021Q2

REPORT INFORMATION
  Report Type: Spontaneous
  Country: US (occurrence: US)
  Receive Date: 20210405
  Receipt Date: 20210405
  Transmission Date: 20210717
  Serious: No
  Sender: FDA-Public Use
  Company Number: US-JNJFOC-20210353004

PATIENT
  Sex: Male

DRUGS (2)
  1. STELARA [Suspect]
     Active Substance: USTEKINUMAB
     Indication: CROHN^S DISEASE
     Dosage: 6 WEEKS TO EVERY 4 WEEKS
     Route: 058
     Dates: start: 20191208
  2. STELARA [Suspect]
     Active Substance: USTEKINUMAB
     Dosage: 6 WEEKS TO EVERY 4 WEEKS
     Route: 058
     Dates: start: 20210326

REACTIONS (3)
  - Inappropriate schedule of product administration [Unknown]
  - Off label use [Unknown]
  - Therapeutic response decreased [Unknown]
